FAERS Safety Report 19149454 (Version 3)
Quarter: 2021Q3

REPORT INFORMATION
  Report Type: Spontaneous
  Country: US (occurrence: US)
  Receive Date: 20210416
  Receipt Date: 20210820
  Transmission Date: 20211014
  Serious: Yes (Death, Hospitalization, Other)
  Sender: FDA-Public Use
  Company Number: US-JNJFOC-20210420882

PATIENT
  Age: 88 Year
  Sex: Female
  Weight: 95.34 kg

DRUGS (36)
  1. FIRDAPSE [Interacting]
     Active Substance: AMIFAMPRIDINE PHOSPHATE
     Indication: MYASTHENIC SYNDROME
     Route: 048
     Dates: start: 201905
  2. FIRDAPSE [Interacting]
     Active Substance: AMIFAMPRIDINE PHOSPHATE
     Route: 048
     Dates: start: 20191206, end: 2019
  3. METOPROLOL TARTRATE. [Concomitant]
     Active Substance: METOPROLOL TARTRATE
     Route: 048
  4. PROLIA [Concomitant]
     Active Substance: DENOSUMAB
  5. CYANOCOBALAMIN. [Concomitant]
     Active Substance: CYANOCOBALAMIN
     Route: 030
  6. XARELTO [Suspect]
     Active Substance: RIVAROXABAN
     Indication: CEREBROVASCULAR ACCIDENT PROPHYLAXIS
  7. FIRDAPSE [Interacting]
     Active Substance: AMIFAMPRIDINE PHOSPHATE
     Route: 048
     Dates: end: 20210730
  8. BACTRIM [Suspect]
     Active Substance: SULFAMETHOXAZOLE\TRIMETHOPRIM
     Indication: KLEBSIELLA BACTERAEMIA
     Route: 048
     Dates: start: 20191128, end: 20191203
  9. PREDNISONE. [Suspect]
     Active Substance: PREDNISONE
     Route: 048
  10. NIACIN. [Concomitant]
     Active Substance: NIACIN
  11. OMEGA 3 FORTE [COD?LIVER OIL] [Concomitant]
  12. TYLENOL [Concomitant]
     Active Substance: ACETAMINOPHEN
     Route: 048
  13. VITAMIN B12 AMINO [Concomitant]
     Active Substance: CYANOCOBALAMIN
  14. PEPCID [Concomitant]
     Active Substance: FAMOTIDINE
  15. LIDOCAINE;PROCAINE [Concomitant]
  16. DENOSUMAB [Concomitant]
     Active Substance: DENOSUMAB
     Route: 030
  17. LEKOVIT CA [Concomitant]
     Active Substance: CALCIUM CARBONATE\CHOLECALCIFEROL
  18. BACTRIM [Suspect]
     Active Substance: SULFAMETHOXAZOLE\TRIMETHOPRIM
     Route: 048
  19. COLACE [Concomitant]
     Active Substance: DOCUSATE SODIUM
  20. LASIX [Concomitant]
     Active Substance: FUROSEMIDE
  21. AMIODARONE [Concomitant]
     Active Substance: AMIODARONE
     Route: 048
  22. FIRDAPSE [Interacting]
     Active Substance: AMIFAMPRIDINE PHOSPHATE
     Route: 048
     Dates: start: 201905, end: 2019
  23. PREDNISONE. [Suspect]
     Active Substance: PREDNISONE
     Route: 048
  24. FUROSEMIDE. [Concomitant]
     Active Substance: FUROSEMIDE
  25. COENZYME Q10+ [Concomitant]
     Active Substance: DIETARY SUPPLEMENT\UBIDECARENONE
  26. CLARITINE [Concomitant]
     Active Substance: LORATADINE
  27. TAMSULOSIN [Concomitant]
     Active Substance: TAMSULOSIN
  28. DIGOXIN. [Concomitant]
     Active Substance: DIGOXIN
     Dosage: ON MONDAY, WEDNESDAY, AND FRIDAY,
     Route: 048
  29. RANITIDINE. [Concomitant]
     Active Substance: RANITIDINE
  30. XARELTO [Suspect]
     Active Substance: RIVAROXABAN
     Indication: ATRIAL FIBRILLATION
     Route: 048
     Dates: end: 20210315
  31. TAPENTADOL [Interacting]
     Active Substance: TAPENTADOL
     Indication: PRODUCT USED FOR UNKNOWN INDICATION
     Route: 065
  32. LATANOPROST. [Concomitant]
     Active Substance: LATANOPROST
     Dosage: RIGHT EYE EVERY EVENING,
  33. MAG OXIDE [Concomitant]
     Active Substance: MAGNESIUM OXIDE
     Dosage: ON MONDAYS AND THURSDAYS
     Route: 048
  34. MIDODRINE [Concomitant]
     Active Substance: MIDODRINE
     Route: 048
  35. OMEPRAZOLE. [Concomitant]
     Active Substance: OMEPRAZOLE
  36. VITAMIN D3 [Concomitant]
     Active Substance: CHOLECALCIFEROL

REACTIONS (23)
  - Urinary tract infection bacterial [Recovered/Resolved]
  - Septic shock [Recovered/Resolved]
  - Fall [Recovered/Resolved]
  - Gastric haemorrhage [Not Recovered/Not Resolved]
  - Flank pain [Unknown]
  - Toxicity to various agents [Recovered/Resolved]
  - Anaemia [Not Recovered/Not Resolved]
  - Atrial fibrillation [Unknown]
  - Tremor [Recovered/Resolved]
  - Haematuria [Unknown]
  - Asthenia [Unknown]
  - Nephrolithiasis [Recovered/Resolved]
  - Klebsiella bacteraemia [Recovered/Resolved]
  - Acute kidney injury [Recovered/Resolved]
  - Drug interaction [Unknown]
  - Muscular weakness [Recovered/Resolved]
  - Contusion [Recovered/Resolved]
  - Pain in extremity [Recovered/Resolved]
  - Decubitus ulcer [Unknown]
  - COVID-19 [Recovering/Resolving]
  - Diabetes mellitus [Unknown]
  - Gastrointestinal haemorrhage [Not Recovered/Not Resolved]
  - Oedema peripheral [Unknown]

NARRATIVE: CASE EVENT DATE: 201910
